FAERS Safety Report 10267411 (Version 1)
Quarter: 2014Q2

REPORT INFORMATION
  Report Type: Spontaneous
  Country: US (occurrence: None)
  Receive Date: 20140626
  Receipt Date: 20140626
  Transmission Date: 20141212
  Serious: No
  Sender: FDA-Public Use
  Company Number: None

PATIENT
  Age: 46 Year
  Sex: Female
  Weight: 60.33 kg

DRUGS (1)
  1. MIRVASO [Suspect]
     Indication: ROSACEA
     Dosage: ONCE DAILY APPLIED TO A SURFACE, USUALLY THE SKIN
     Dates: start: 20140515, end: 20140528

REACTIONS (4)
  - Rosacea [None]
  - Condition aggravated [None]
  - Sunburn [None]
  - Feeling hot [None]
